FAERS Safety Report 10442678 (Version 1)
Quarter: 2014Q3

REPORT INFORMATION
  Report Type: Spontaneous
  Country: CA (occurrence: CA)
  Receive Date: 20140909
  Receipt Date: 20140909
  Transmission Date: 20150326
  Serious: Yes (Other)
  Sender: FDA-Public Use
  Company Number: PHHY2014CA110907

PATIENT
  Age: 10 Year
  Sex: Male

DRUGS (11)
  1. VORICONAZOLE. [Concomitant]
     Active Substance: VORICONAZOLE
     Indication: FIBRINOUS BRONCHITIS
  2. VORICONAZOLE. [Concomitant]
     Active Substance: VORICONAZOLE
     Indication: BRONCHOPULMONARY ASPERGILLOSIS
     Route: 042
  3. AMPHOTERICIN B. [Concomitant]
     Active Substance: AMPHOTERICIN B
     Indication: BRONCHOPULMONARY ASPERGILLOSIS
     Dosage: UNK
  4. TACROLIMUS. [Concomitant]
     Active Substance: TACROLIMUS
     Indication: IMMUNOSUPPRESSION
  5. MYCOPHENOLATE MOFETIL. [Concomitant]
     Active Substance: MYCOPHENOLATE MOFETIL
     Indication: IMMUNOSUPPRESSION
  6. CASPOFUNGIN [Concomitant]
     Active Substance: CASPOFUNGIN
     Indication: FIBRINOUS BRONCHITIS
  7. AMPHOTERICIN B. [Concomitant]
     Active Substance: AMPHOTERICIN B
     Indication: FIBRINOUS BRONCHITIS
  8. CORTICOSTEROIDS [Concomitant]
     Active Substance: CORTICOSTEROID NOS
     Indication: FUNGAL INFECTION
     Route: 042
  9. PREDNISONE. [Concomitant]
     Active Substance: PREDNISONE
     Indication: IMMUNOSUPPRESSION
  10. CASPOFUNGIN [Concomitant]
     Active Substance: CASPOFUNGIN
     Indication: BRONCHOPULMONARY ASPERGILLOSIS
  11. VORICONAZOLE. [Suspect]
     Active Substance: VORICONAZOLE
     Indication: FUNGAL INFECTION
     Route: 048

REACTIONS (16)
  - Scab [Unknown]
  - Actinic keratosis [Not Recovered/Not Resolved]
  - Solar lentigo [Unknown]
  - Skin mass [Unknown]
  - Macule [Unknown]
  - Nail discolouration [Unknown]
  - Photosensitivity reaction [Not Recovered/Not Resolved]
  - Sunburn [Unknown]
  - Dysplastic naevus [Unknown]
  - Lip blister [Unknown]
  - Erythema [Unknown]
  - Fungal infection [Recovered/Resolved]
  - Blister [Unknown]
  - Squamous cell carcinoma [Recovered/Resolved]
  - Photoonycholysis [Unknown]
  - Photodermatosis [Not Recovered/Not Resolved]
